FAERS Safety Report 25765087 (Version 1)
Quarter: 2025Q3

REPORT INFORMATION
  Report Type: Spontaneous
  Country: US (occurrence: US)
  Receive Date: 20250905
  Receipt Date: 20250905
  Transmission Date: 20251021
  Serious: Yes (Death, Life-Threatening, Hospitalization, Other)
  Sender: STRIDES
  Company Number: US-STRIDES NORDIC APS-2025SP011259

PATIENT
  Sex: Male

DRUGS (5)
  1. COLCHICINE [Suspect]
     Active Substance: COLCHICINE
     Indication: Myopericarditis
     Route: 048
  2. COLCHICINE [Suspect]
     Active Substance: COLCHICINE
     Route: 048
  3. CARVEDILOL [Concomitant]
     Active Substance: CARVEDILOL
     Indication: Myopericarditis
     Route: 048
  4. METHAMPHETAMINE [Concomitant]
     Active Substance: METHAMPHETAMINE
     Indication: Product used for unknown indication
     Route: 065
  5. COCAINE [Concomitant]
     Active Substance: COCAINE
     Indication: Product used for unknown indication
     Route: 065

REACTIONS (7)
  - Multiple organ dysfunction syndrome [Fatal]
  - Cardiac function test abnormal [Fatal]
  - Toxicity to various agents [Fatal]
  - Overdose [Fatal]
  - Leukocytosis [Unknown]
  - Off label use [Unknown]
  - Incorrect dose administered [Unknown]
